FAERS Safety Report 5355950-9 (Version None)
Quarter: 2007Q2

REPORT INFORMATION
  Report Type: 
  Country: None (occurrence: None)
  Receive Date: 20070613
  Receipt Date: 20070605
  Transmission Date: 20071010
  Serious: Yes (Life-Threatening, Hospitalization)
  Sender: FDA-Public Use
  Company Number: FR-SANOFI-SYNTHELABO-A02200701625

PATIENT
  Sex: Female
  Weight: 64 kg

DRUGS (16)
  1. DOXORUBICIN HCL [Concomitant]
     Indication: B-CELL UNCLASSIFIABLE LYMPHOMA HIGH GRADE
     Route: 042
     Dates: start: 20070425, end: 20070425
  2. MABTHERA [Concomitant]
     Indication: B-CELL UNCLASSIFIABLE LYMPHOMA HIGH GRADE
     Route: 042
     Dates: start: 20070425, end: 20070425
  3. UROMITEXAN [Concomitant]
     Indication: B-CELL UNCLASSIFIABLE LYMPHOMA HIGH GRADE
     Route: 065
     Dates: start: 20070425, end: 20070425
  4. ENDOXAN [Concomitant]
     Indication: B-CELL UNCLASSIFIABLE LYMPHOMA HIGH GRADE
     Route: 042
     Dates: start: 20070425, end: 20070425
  5. FASTURTEC [Suspect]
     Indication: B-CELL UNCLASSIFIABLE LYMPHOMA HIGH GRADE
     Route: 042
     Dates: start: 20070425, end: 20070425
  6. HYDROCORTISONE HEMISUCCINATE [Concomitant]
     Route: 037
     Dates: start: 20070425, end: 20070425
  7. METHOTREXATE [Concomitant]
     Route: 037
     Dates: start: 20070425, end: 20070425
  8. CYTARABINE [Concomitant]
     Route: 037
     Dates: start: 20070425, end: 20070425
  9. ZOFRAN [Concomitant]
     Dosage: UNK
     Route: 042
     Dates: start: 20070425, end: 20070425
  10. PERFALGAN [Concomitant]
     Dosage: UNK
     Route: 042
     Dates: start: 20070425, end: 20070425
  11. OGAST [Concomitant]
     Dosage: O UNK
     Route: 048
  12. HYPERIUM [Concomitant]
     Dosage: UNK
     Route: 048
  13. ZANIDIP [Concomitant]
     Dosage: UNK
     Route: 048
  14. TENORMIN [Concomitant]
     Dosage: UNK
     Route: 048
  15. COTAREG [Concomitant]
     Dosage: UNK
     Route: 048
  16. ONCOVIN [Concomitant]
     Indication: B-CELL UNCLASSIFIABLE LYMPHOMA HIGH GRADE
     Route: 042
     Dates: start: 20070425, end: 20070425

REACTIONS (4)
  - BLOOD CREATININE INCREASED [None]
  - CARDIAC FAILURE [None]
  - HAEMOLYTIC ANAEMIA [None]
  - METHAEMOGLOBINAEMIA [None]
